FAERS Safety Report 13612368 (Version 1)
Quarter: 2017Q2

REPORT INFORMATION
  Report Type: Spontaneous
  Country: US (occurrence: US)
  Receive Date: 20170605
  Receipt Date: 20170605
  Transmission Date: 20170830
  Serious: Yes (Hospitalization, Other)
  Sender: FDA-Public Use
  Company Number: US-NOVOPROD-547773

PATIENT
  Age: 68 Year
  Sex: Female

DRUGS (2)
  1. TRESIBA [Suspect]
     Active Substance: INSULIN DEGLUDEC
     Indication: TYPE 2 DIABETES MELLITUS
     Dosage: DAILY
     Route: 058
  2. HUMALOG [Concomitant]
     Active Substance: INSULIN LISPRO
     Indication: TYPE 2 DIABETES MELLITUS

REACTIONS (7)
  - Postoperative adhesion [Unknown]
  - Small intestinal obstruction [Unknown]
  - Gastrointestinal wall thickening [Unknown]
  - Vitamin B12 deficiency [Unknown]
  - Gastrointestinal haemorrhage [Unknown]
  - Surgery [Unknown]
  - Diabetic coma [Unknown]

NARRATIVE: CASE EVENT DATE: 2017
